FAERS Safety Report 23014022 (Version 1)
Quarter: 2023Q4

REPORT INFORMATION
  Report Type: Spontaneous
  Country: US (occurrence: US)
  Receive Date: 20231002
  Receipt Date: 20231002
  Transmission Date: 20240110
  Serious: Yes (Hospitalization, Other)
  Sender: FDA-Public Use
  Company Number: US-SEAGEN-2023SGN10756

PATIENT
  Sex: Female

DRUGS (2)
  1. TIVDAK [Suspect]
     Active Substance: TISOTUMAB VEDOTIN-TFTV
     Indication: Cervix carcinoma
     Dosage: 1.3 MG/KG
     Route: 065
     Dates: start: 20230814
  2. TIVDAK [Suspect]
     Active Substance: TISOTUMAB VEDOTIN-TFTV
     Dosage: UNK
     Route: 065
     Dates: start: 20230606

REACTIONS (2)
  - Acute kidney injury [Unknown]
  - Urinary tract obstruction [Unknown]
